FAERS Safety Report 4981881-X (Version None)
Quarter: 2006Q2

REPORT INFORMATION
  Report Type: 
  Country: None (occurrence: None)
  Receive Date: 20060424
  Receipt Date: 20060424
  Transmission Date: 20061013
  Serious: Yes (Death, Other)
  Sender: FDA-Public Use
  Company Number: None

PATIENT
  Sex: Male
  Weight: 87 kg

DRUGS (3)
  1. INTRON A [Suspect]
     Indication: SMALL CELL LUNG CANCER STAGE UNSPECIFIED
     Dosage: 12 MU
     Dates: start: 20041028, end: 20041029
  2. ACCUTANE [Suspect]
     Dosage: 160 MG
     Dates: start: 20041028, end: 20041029
  3. TAXOL [Suspect]
     Dosage: 143 MG
     Dates: start: 20041029, end: 20041029

REACTIONS (9)
  - ASPIRATION [None]
  - CONDITION AGGRAVATED [None]
  - DEEP VEIN THROMBOSIS [None]
  - DYSPHAGIA [None]
  - DYSPNOEA [None]
  - METASTASES TO LIVER [None]
  - ORAL INTAKE REDUCED [None]
  - SMALL CELL LUNG CANCER STAGE UNSPECIFIED [None]
  - SUPERIOR VENA CAVAL OCCLUSION [None]
